FAERS Safety Report 17683356 (Version 1)
Quarter: 2020Q2

REPORT INFORMATION
  Report Type: Spontaneous
  Country: US (occurrence: US)
  Receive Date: 20200420
  Receipt Date: 20200420
  Transmission Date: 20200714
  Serious: No
  Sender: FDA-Public Use
  Company Number: US-UNICHEM PHARMACEUTICALS (USA) INC-UCM201905-000165

PATIENT
  Sex: Female

DRUGS (3)
  1. TOPIRAMATE. [Suspect]
     Active Substance: TOPIRAMATE
  2. ATIVAN ER [Concomitant]
     Indication: SEIZURE
  3. TOPIRAMATE. [Suspect]
     Active Substance: TOPIRAMATE
     Indication: SEIZURE

REACTIONS (4)
  - Oropharyngeal pain [Unknown]
  - Tongue blistering [Unknown]
  - Wrong technique in product usage process [Unknown]
  - Feeling of body temperature change [Unknown]
